FAERS Safety Report 12874384 (Version 2)
Quarter: 2016Q4

REPORT INFORMATION
  Report Type: Spontaneous
  Country: US (occurrence: US)
  Receive Date: 20161021
  Receipt Date: 20161107
  Transmission Date: 20170207
  Serious: Yes (Hospitalization, Other)
  Sender: FDA-Public Use
  Company Number: US-BELCHER PHARMACEUTICALS, LLC-2016VTS00218

PATIENT
  Age: 65 Year
  Sex: Female
  Weight: 65.31 kg

DRUGS (4)
  1. SYNTHROID [Concomitant]
     Active Substance: LEVOTHYROXINE SODIUM
  2. UNSPECIFIED WATER PILL [Concomitant]
  3. AMLODIPINE [Concomitant]
     Active Substance: AMLODIPINE BESYLATE
  4. HYOSCYAMINE SULFATE SL [Suspect]
     Active Substance: HYOSCYAMINE SULFATE
     Indication: DIVERTICULUM
     Dosage: 0.25 MG, 3X/DAY
     Route: 060
     Dates: start: 20160505, end: 201609

REACTIONS (24)
  - Abasia [Recovering/Resolving]
  - Blood potassium increased [Recovering/Resolving]
  - Dysarthria [Recovering/Resolving]
  - Dysuria [Recovering/Resolving]
  - Product quality issue [None]
  - Blood sodium increased [Recovering/Resolving]
  - Balance disorder [Recovering/Resolving]
  - Swollen tongue [Recovering/Resolving]
  - Hallucination [Recovering/Resolving]
  - Encephalopathy [Recovering/Resolving]
  - Urinary retention [Recovering/Resolving]
  - Dizziness [Recovering/Resolving]
  - Dehydration [Recovered/Resolved]
  - Escherichia test positive [None]
  - Confusional state [Recovering/Resolving]
  - Breast cancer [Recovering/Resolving]
  - Urinary tract infection bacterial [Recovering/Resolving]
  - Back pain [Recovering/Resolving]
  - Acute kidney injury [Recovered/Resolved]
  - Speech disorder [Recovering/Resolving]
  - Pyrexia [Recovering/Resolving]
  - Dry mouth [Recovering/Resolving]
  - Visual impairment [Recovering/Resolving]
  - Dysstasia [Recovering/Resolving]

NARRATIVE: CASE EVENT DATE: 2016
